FAERS Safety Report 17686909 (Version 2)
Quarter: 2020Q2

REPORT INFORMATION
  Report Type: Report from Study
  Country: None (occurrence: SE)
  Receive Date: 20200421
  Receipt Date: 20200424
  Transmission Date: 20200714
  Serious: Yes (Death)
  Sender: FDA-Public Use
  Company Number: SE-ABBVIE-20K-150-3371208-00

PATIENT
  Age: 68 Year
  Sex: Male
  Weight: 58 kg

DRUGS (3)
  1. DUODOPA [Suspect]
     Active Substance: CARBIDOPA\LEVODOPA
     Dosage: 6 ML/H
     Route: 050
     Dates: start: 20091026, end: 20200403
  2. FLUTIFORM [Concomitant]
     Active Substance: FLUTICASONE PROPIONATE\FORMOTEROL FUMARATE
     Indication: ASTHMA
  3. DUODOPA [Suspect]
     Active Substance: CARBIDOPA\LEVODOPA
     Indication: PARKINSON^S DISEASE
     Route: 050
     Dates: start: 20090913, end: 2009

REACTIONS (6)
  - Balance disorder [Unknown]
  - Dementia [Unknown]
  - Memory impairment [Unknown]
  - Pneumonia [Fatal]
  - Spinal fracture [Unknown]
  - Fall [Unknown]

NARRATIVE: CASE EVENT DATE: 202002
